FAERS Safety Report 23402291 (Version 1)
Quarter: 2024Q1

REPORT INFORMATION
  Report Type: Spontaneous
  Country: US (occurrence: US)
  Receive Date: 20240115
  Receipt Date: 20240115
  Transmission Date: 20240409
  Serious: Yes (Life-Threatening, Hospitalization, Other)
  Sender: FDA-Public Use
  Company Number: US-SANDOZ-SDZ2024US003438

PATIENT
  Age: 36 Year
  Sex: Male

DRUGS (3)
  1. METOPROLOL [Suspect]
     Active Substance: METOPROLOL
     Indication: Cardiac failure
     Dosage: UNK
     Route: 065
  2. METHIMAZOLE [Suspect]
     Active Substance: METHIMAZOLE
     Indication: Cardiac failure
     Dosage: UNK
     Route: 065
  3. PREDNISONE [Suspect]
     Active Substance: PREDNISONE
     Indication: Cardiac failure
     Dosage: UNK
     Route: 065

REACTIONS (5)
  - Acute pulmonary oedema [Unknown]
  - Acute kidney injury [Unknown]
  - Ischaemic hepatitis [Unknown]
  - Intestinal ischaemia [Unknown]
  - Cardiac arrest [Unknown]
